FAERS Safety Report 6176563-5 (Version None)
Quarter: 2009Q2

REPORT INFORMATION
  Report Type: 
  Country: None (occurrence: None)
  Receive Date: 20090501
  Receipt Date: 20090428
  Transmission Date: 20091009
  Serious: Yes (Hospitalization, Other)
  Sender: FDA-Public Use
  Company Number: US-ASTRAZENECA-2007UW05908

PATIENT
  Age: 15803 Day
  Sex: Female
  Weight: 175.1 kg

DRUGS (5)
  1. SEROQUEL [Suspect]
     Indication: BIPOLAR DISORDER
     Dosage: 25 MG TO 300 MG
     Route: 048
     Dates: start: 20030901, end: 20080501
  2. DIDREX [Concomitant]
  3. GEODON [Concomitant]
     Dates: start: 20051201, end: 20060501
  4. RISPERDAL [Concomitant]
     Dates: start: 20030801, end: 20040101
  5. ZYPREXA [Concomitant]
     Dosage: 5 MG TO 20 MG
     Dates: start: 20020301, end: 20050401

REACTIONS (13)
  - ALANINE AMINOTRANSFERASE INCREASED [None]
  - ASTHENIA [None]
  - CAROTID ARTERY DISEASE [None]
  - DIABETES MELLITUS [None]
  - DIABETIC COMA [None]
  - DIZZINESS [None]
  - DYSARTHRIA [None]
  - LOSS OF CONSCIOUSNESS [None]
  - MENTAL STATUS CHANGES [None]
  - NEUROPATHY PERIPHERAL [None]
  - OBESITY [None]
  - PRESYNCOPE [None]
  - TRANSIENT ISCHAEMIC ATTACK [None]
